FAERS Safety Report 5125947-2 (Version None)
Quarter: 2006Q4

REPORT INFORMATION
  Report Type: 
  Country: None (occurrence: None)
  Receive Date: 20061010
  Receipt Date: 20061010
  Transmission Date: 20070319
  Serious: No
  Sender: FDA-Public Use
  Company Number: None

PATIENT
  Age: 56 Year
  Sex: Female

DRUGS (1)
  1. POLYETHYLENE GLYCOL [Suspect]
     Indication: IRRITABLE BOWEL SYNDROME
     Dosage: MIX AND DRINK 17 GMS DAILY
     Dates: start: 20060710

REACTIONS (1)
  - PHARMACEUTICAL PRODUCT COMPLAINT [None]
